FAERS Safety Report 20168423 (Version 1)
Quarter: 2021Q4

REPORT INFORMATION
  Report Type: Spontaneous
  Country: HR (occurrence: HR)
  Receive Date: 20211210
  Receipt Date: 20211210
  Transmission Date: 20220303
  Serious: Yes (Other)
  Sender: FDA-Public Use
  Company Number: None

PATIENT
  Sex: Male

DRUGS (2)
  1. RISPERIDONE [Suspect]
     Active Substance: RISPERIDONE
     Dosage: 20 DF
     Route: 048
     Dates: start: 20210707, end: 20210707
  2. ZYPREXA [Suspect]
     Active Substance: OLANZAPINE
     Dosage: 100 MG
     Route: 048
     Dates: start: 20210707, end: 20210707

REACTIONS (2)
  - Intentional overdose [Unknown]
  - Suicide attempt [Unknown]

NARRATIVE: CASE EVENT DATE: 20210707
